FAERS Safety Report 20000969 (Version 1)
Quarter: 2021Q4

REPORT INFORMATION
  Report Type: Spontaneous
  Country: US (occurrence: US)
  Receive Date: 20211026
  Receipt Date: 20211026
  Transmission Date: 20220303
  Serious: No
  Sender: FDA-Public Use
  Company Number: None

PATIENT
  Age: 14 Year
  Sex: Female

DRUGS (1)
  1. HUMIRA [Suspect]
     Active Substance: ADALIMUMAB
     Dosage: ?          OTHER STRENGTH:80;OTHER DOSE:1 INJECTION;OTHER FREQUENCY:OTHER;
     Route: 058
     Dates: start: 20211026

REACTIONS (2)
  - Product storage error [None]
  - Product physical issue [None]

NARRATIVE: CASE EVENT DATE: 20211026
